FAERS Safety Report 15043687 (Version 1)
Quarter: 2018Q2

REPORT INFORMATION
  Report Type: Other
  Country: FR (occurrence: FR)
  Receive Date: 20180621
  Receipt Date: 20180621
  Transmission Date: 20180711
  Serious: Yes (Hospitalization)
  Sender: FDA-Public Use
  Company Number: FR-CELLTRION INC.-2018FR020629

PATIENT

DRUGS (1)
  1. REMSIMA [Suspect]
     Active Substance: INFLIXIMAB
     Indication: COLITIS
     Dosage: 10 MCI
     Route: 042
     Dates: start: 20180530, end: 20180530

REACTIONS (3)
  - Pyrexia [Recovering/Resolving]
  - Dermo-hypodermitis [Recovering/Resolving]
  - Product substitution issue [Recovering/Resolving]

NARRATIVE: CASE EVENT DATE: 20180531
